FAERS Safety Report 8074164-5 (Version None)
Quarter: 2012Q1

REPORT INFORMATION
  Report Type: 
  Country: None (occurrence: None)
  Receive Date: 20120119
  Receipt Date: 20120109
  Transmission Date: 20120608
  Serious: Yes (Hospitalization)
  Sender: FDA-Public Use
  Company Number: DSA_48605_2011

PATIENT
  Age: 84 Year
  Sex: Male

DRUGS (7)
  1. PREVISCAN /00789001/ (PREVISCAN-FLUINDIONE) 1.25 DF (NOT SPECIFIED) [Suspect]
     Indication: PRODUCT USED FOR UNKNOWN INDICATION
     Dosage: (1.25 DF QD ORAL)
     Route: 048
     Dates: start: 20100901, end: 20101018
  2. NOZINAN /00038601/ (UNKNOWN UNTIL CONTINUING) [Concomitant]
  3. TRANXENE (UNKNOWN UNTIL CONTINUING) [Concomitant]
  4. DILTIAZEM HYDROCHLORIDE [Suspect]
     Indication: PRODUCT USED FOR UNKNOWN INDICATION
     Dosage: (90 MG QD ORAL) 90 MG (NOT SPECIFIED)
     Route: 048
     Dates: start: 20100901, end: 20101001
  5. MICARDIS (UNKNOWN UNTIL CONTINUING) [Concomitant]
  6. FORADIL (UNKNOWN UNTIL CONTINUING) [Concomitant]
  7. LANSOPRAZOLE (UNKNOWN UNTIL CONTINUING) [Concomitant]

REACTIONS (9)
  - TACHYCARDIA [None]
  - RASH MACULO-PAPULAR [None]
  - SEPSIS [None]
  - LUNG DISORDER [None]
  - SKIN EXFOLIATION [None]
  - HYPOTENSION [None]
  - SKIN PLAQUE [None]
  - TOXIC SKIN ERUPTION [None]
  - RENAL FAILURE [None]
